FAERS Safety Report 19123129 (Version 1)
Quarter: 2021Q2

REPORT INFORMATION
  Report Type: Spontaneous
  Country: GB (occurrence: GB)
  Receive Date: 20210412
  Receipt Date: 20210412
  Transmission Date: 20210717
  Serious: Yes (Disabling, Other)
  Sender: FDA-Public Use
  Company Number: GB-MYLANLABS-2021M1021351

PATIENT
  Age: 49 Year
  Sex: Female
  Weight: 64 kg

DRUGS (3)
  1. LANSOPRAZOLE. [Suspect]
     Active Substance: LANSOPRAZOLE
     Dosage: 60 MILLIGRAM
     Route: 048
     Dates: end: 20150620
  2. LANSOPRAZOLE. [Suspect]
     Active Substance: LANSOPRAZOLE
     Dosage: 30 MILLIGRAM ONE MONTH
     Route: 048
  3. LANSOPRAZOLE. [Suspect]
     Active Substance: LANSOPRAZOLE
     Indication: DYSPEPSIA
     Dosage: 15 MILLIGRAM TWO MONTHS
     Route: 048
     Dates: start: 20141125

REACTIONS (4)
  - Regurgitation [Recovering/Resolving]
  - Oesophageal pain [Recovering/Resolving]
  - Dry throat [Recovered/Resolved with Sequelae]
  - Product use complaint [Recovered/Resolved with Sequelae]

NARRATIVE: CASE EVENT DATE: 2015
